FAERS Safety Report 7096326-6 (Version None)
Quarter: 2010Q4

REPORT INFORMATION
  Report Type: 
  Country: None (occurrence: None)
  Receive Date: 20101111
  Receipt Date: 20101029
  Transmission Date: 20110411
  Serious: Yes (Hospitalization)
  Sender: FDA-Public Use
  Company Number: AT-CELGENEUS-009-21880-10110187

PATIENT

DRUGS (1)
  1. REVLIMID [Suspect]
     Indication: MEDULLOBLASTOMA
     Route: 048

REACTIONS (1)
  - RESPIRATORY DISORDER [None]
